FAERS Safety Report 17205102 (Version 1)
Quarter: 2019Q4

REPORT INFORMATION
  Report Type: Spontaneous
  Country: FR (occurrence: FR)
  Receive Date: 20191227
  Receipt Date: 20191227
  Transmission Date: 20200122
  Serious: Yes (Other)
  Sender: FDA-Public Use
  Company Number: FR-AUROBINDO-AUR-APL-2019-107639

PATIENT
  Age: 27 Year
  Sex: Female

DRUGS (2)
  1. OPTIMIZETTE [Concomitant]
     Active Substance: DESOGESTREL
     Indication: CONTRACEPTION
     Dosage: UNK
     Route: 048
  2. METRONIDAZOLE. [Suspect]
     Active Substance: METRONIDAZOLE
     Indication: INFECTION PARASITIC
     Dosage: UNK
     Route: 048
     Dates: start: 20191128, end: 20191202

REACTIONS (1)
  - Chorioretinitis [Unknown]

NARRATIVE: CASE EVENT DATE: 20191202
